FAERS Safety Report 5672995-X (Version None)
Quarter: 2008Q1

REPORT INFORMATION
  Report Type: 
  Country: None (occurrence: None)
  Receive Date: 20080319
  Receipt Date: 20080226
  Transmission Date: 20080703
  Serious: No
  Sender: FDA-Public Use
  Company Number: US-ASTRAZENECA-2008UW02305

PATIENT
  Age: 785 Month
  Sex: Male
  Weight: 88.9 kg

DRUGS (10)
  1. SYMBICORT [Suspect]
     Indication: ASTHMA
     Dosage: 160/4.5UG
     Route: 055
  2. DILTIAZEM [Concomitant]
  3. LIPITOR [Concomitant]
  4. SINGULAIR [Concomitant]
  5. ALPHAGAN DROP [Concomitant]
  6. ALBUTEROL [Concomitant]
  7. DUONEB [Concomitant]
  8. XALATAN [Concomitant]
  9. TESTOSTERONE [Concomitant]
  10. CIALIS [Concomitant]

REACTIONS (1)
  - PEAK EXPIRATORY FLOW RATE DECREASED [None]
